FAERS Safety Report 6822041-7 (Version None)
Quarter: 2010Q3

REPORT INFORMATION
  Report Type: 
  Country: None (occurrence: None)
  Receive Date: 20100708
  Receipt Date: 20100624
  Transmission Date: 20110219
  Serious: Yes (Other)
  Sender: FDA-Public Use
  Company Number: US-JNJFOC-20100607722

PATIENT
  Sex: Female
  Weight: 68.04 kg

DRUGS (4)
  1. FENTANYL [Suspect]
     Indication: BACK PAIN
     Route: 062
  2. WARFARIN [Concomitant]
     Indication: CEREBROVASCULAR ACCIDENT
     Route: 048
  3. NADOLOL [Concomitant]
     Indication: HEART RATE IRREGULAR
     Route: 048
  4. AMILORIDE HYDROCHLORIDE [Concomitant]
     Indication: PRODUCT USED FOR UNKNOWN INDICATION
     Route: 048

REACTIONS (3)
  - ARTHRALGIA [None]
  - ARTHRITIS INFECTIVE [None]
  - INAPPROPRIATE SCHEDULE OF DRUG ADMINISTRATION [None]
